FAERS Safety Report 6383202-7 (Version None)
Quarter: 2009Q3

REPORT INFORMATION
  Report Type: 
  Country: None (occurrence: None)
  Receive Date: 20090929
  Receipt Date: 20090916
  Transmission Date: 20100115
  Serious: Yes (Death)
  Sender: FDA-Public Use
  Company Number: PAR_03140_2009

PATIENT
  Sex: Male
  Weight: 55.3388 kg

DRUGS (2)
  1. MEGESTROL ACETATE [Suspect]
     Indication: WEIGHT DECREASED
     Dosage: (40 MG BID ORAL)
     Route: 048
     Dates: start: 20090413, end: 20090701
  2. MULTIPLE OTHER MEDICATIONS [Concomitant]

REACTIONS (1)
  - DEATH [None]
